FAERS Safety Report 4777703-2 (Version None)
Quarter: 2005Q3

REPORT INFORMATION
  Report Type: 
  Country: None (occurrence: None)
  Receive Date: 20050921
  Receipt Date: 20050907
  Transmission Date: 20060218
  Serious: Yes (Hospitalization, Other)
  Sender: FDA-Public Use
  Company Number: US_0503113600

PATIENT
  Age: 36 Year
  Sex: Male

DRUGS (6)
  1. ZYPREXA [Suspect]
     Indication: DEPRESSION
     Dosage: 20 MG
     Dates: start: 20000101
  2. SEROQUEL [Concomitant]
  3. GEODON [Concomitant]
  4. DEPAKOTE [Concomitant]
  5. LITHIUM [Concomitant]
  6. EFFEXOR [Concomitant]

REACTIONS (3)
  - CONVULSION [None]
  - HYPERTENSION [None]
  - PANCREATITIS [None]
